FAERS Safety Report 26038503 (Version 3)
Quarter: 2025Q4

REPORT INFORMATION
  Report Type: Report from Study
  Country: IN (occurrence: IN)
  Receive Date: 20251113
  Receipt Date: 20251202
  Transmission Date: 20260118
  Serious: Yes (Hospitalization, Other)
  Sender: Vantive US Healthcare
  Company Number: IN-VANTIVE-2025VAN000595

PATIENT
  Age: 61 Year
  Sex: Male

DRUGS (6)
  1. DIANEAL PD-2 WITH DEXTROSE [Suspect]
     Active Substance: CALCIUM CHLORIDE\DEXTROSE\MAGNESIUM CHLORIDE\SODIUM CHLORIDE\SODIUM LACTATE
     Indication: Renal failure
     Dosage: 1 BAG
     Route: 033
  2. DIANEAL PD-2 PERITONEAL DIALYSIS SOLUTION WITH DEXTROSE [Suspect]
     Active Substance: CALCIUM CHLORIDE\DEXTROSE\MAGNESIUM CHLORIDE\SODIUM CHLORIDE\SODIUM LACTATE
     Indication: Renal failure
     Dosage: 1 BAG
     Route: 033
  3. DIANEAL PD-2 PERITONEAL DIALYSIS SOLUTION WITH DEXTROSE [Suspect]
     Active Substance: CALCIUM CHLORIDE\DEXTROSE\MAGNESIUM CHLORIDE\SODIUM CHLORIDE\SODIUM LACTATE
     Dosage: 2 BAGS PER DAY WITH BAG VOLUME OF 5 LITERS
     Route: 033
  4. DIANEAL PD-2 PERITONEAL DIALYSIS SOLUTION WITH DEXTROSE [Suspect]
     Active Substance: CALCIUM CHLORIDE\DEXTROSE\MAGNESIUM CHLORIDE\SODIUM CHLORIDE\SODIUM LACTATE
     Dosage: 4 BAGS PER DAY WITH BAG VOLUME OF 2 LITERS
     Route: 033
  5. DIANEAL PD-2 PERITONEAL DIALYSIS SOLUTION WITH DEXTROSE [Suspect]
     Active Substance: CALCIUM CHLORIDE\DEXTROSE\MAGNESIUM CHLORIDE\SODIUM CHLORIDE\SODIUM LACTATE
     Dosage: 2 BAGS (DOSE REDUCED)
     Route: 033
  6. UNSPECIFIED INGREDIENT [Suspect]
     Active Substance: UNSPECIFIED INGREDIENT
     Dosage: UNK
     Route: 065

REACTIONS (9)
  - Asthenia [Recovered/Resolved]
  - Peritonitis [Recovered/Resolved]
  - Abdominal pain [Recovered/Resolved]
  - Peritoneal cloudy effluent [Recovered/Resolved]
  - Peritonitis [Recovered/Resolved]
  - Peritoneal cloudy effluent [Recovered/Resolved]
  - Abdominal pain [Recovered/Resolved]
  - Peritoneal dialysis complication [Recovered/Resolved]
  - Device leakage [Recovered/Resolved]

NARRATIVE: CASE EVENT DATE: 20250126
